FAERS Safety Report 8474528-1 (Version None)
Quarter: 2012Q2

REPORT INFORMATION
  Report Type: 
  Country: None (occurrence: None)
  Receive Date: 20120628
  Receipt Date: 20120620
  Transmission Date: 20120825
  Serious: Yes (Hospitalization, Other)
  Sender: FDA-Public Use
  Company Number: GB-B.I. PHARMACEUTICALS,INC./RIDGEFIELD-2012-UK-00476UK

PATIENT
  Sex: Male

DRUGS (3)
  1. PRADAXA [Suspect]
     Dosage: 150 MG
     Route: 048
  2. PRADAXA [Suspect]
     Dosage: 75 MG
     Route: 048
  3. PRADAXA [Suspect]
     Indication: CEREBROVASCULAR ACCIDENT PROPHYLAXIS
     Dosage: 75 MG
     Route: 048
     Dates: start: 20090101

REACTIONS (2)
  - INCORRECT DOSE ADMINISTERED [None]
  - PERIPHERAL EMBOLISM [None]
